FAERS Safety Report 8241175-6 (Version None)
Quarter: 2012Q1

REPORT INFORMATION
  Report Type: 
  Country: None (occurrence: None)
  Receive Date: 20120328
  Receipt Date: 20120320
  Transmission Date: 20120608
  Serious: Yes (Other)
  Sender: FDA-Public Use
  Company Number: US-BAYER-2012-022302

PATIENT
  Sex: Female

DRUGS (2)
  1. SYNTHROID [Concomitant]
     Indication: THYROID DISORDER
  2. MIRENA [Suspect]
     Indication: CONTRACEPTION
     Dosage: UNK
     Route: 015
     Dates: start: 20110906

REACTIONS (1)
  - PALPITATIONS [None]
